FAERS Safety Report 15282892 (Version 1)
Quarter: 2018Q3

REPORT INFORMATION
  Report Type: Spontaneous
  Country: FR (occurrence: FR)
  Receive Date: 20180816
  Receipt Date: 20180816
  Transmission Date: 20181010
  Serious: Yes (Death, Other)
  Sender: FDA-Public Use
  Company Number: FR-TEVA-2018-FR-940858

PATIENT
  Age: 73 Year
  Sex: Male

DRUGS (2)
  1. ETOPOSIDE. [Suspect]
     Active Substance: ETOPOSIDE
     Indication: MANTLE CELL LYMPHOMA STAGE IV
     Dosage: 200 MILLIGRAM DAILY;
     Route: 042
     Dates: start: 20140128, end: 20140129
  2. CARBOPLATIN. [Interacting]
     Active Substance: CARBOPLATIN
     Indication: MANTLE CELL LYMPHOMA STAGE IV
     Dosage: 570 MILLIGRAM DAILY;
     Route: 042
     Dates: start: 20140128, end: 20140128

REACTIONS (4)
  - Anaemia [Fatal]
  - Drug interaction [Unknown]
  - Agranulocytosis [Fatal]
  - Acute kidney injury [Fatal]

NARRATIVE: CASE EVENT DATE: 20140207
